FAERS Safety Report 12617801 (Version 1)
Quarter: 2016Q3

REPORT INFORMATION
  Report Type: Spontaneous
  Country: US (occurrence: None)
  Receive Date: 20160802
  Receipt Date: 20160802
  Transmission Date: 20161109
  Serious: Yes (Life-Threatening, Disabling)
  Sender: FDA-Public Use
  Company Number: None

PATIENT
  Age: 15 Year
  Sex: Female
  Weight: 49.9 kg

DRUGS (1)
  1. DEPO-PROVERA [Suspect]
     Active Substance: MEDROXYPROGESTERONE ACETATE
     Indication: CONTRACEPTION
     Route: 058
     Dates: start: 20160106, end: 20160309

REACTIONS (7)
  - Back pain [None]
  - Hot flush [None]
  - Alopecia [None]
  - Headache [None]
  - Haematemesis [None]
  - Malaise [None]
  - Thrombosis [None]

NARRATIVE: CASE EVENT DATE: 20160609
